FAERS Safety Report 20748832 (Version 1)
Quarter: 2022Q2

REPORT INFORMATION
  Report Type: Spontaneous
  Country: CN (occurrence: CN)
  Receive Date: 20220426
  Receipt Date: 20220426
  Transmission Date: 20220721
  Serious: Yes (Hospitalization)
  Sender: FDA-Public Use
  Company Number: CN-SPC-000084

PATIENT
  Age: 57 Year
  Sex: Female

DRUGS (3)
  1. CLINDAMYCIN [Suspect]
     Active Substance: CLINDAMYCIN
     Indication: Uveitis
     Route: 042
  2. DEXAMETHASONE [Suspect]
     Active Substance: DEXAMETHASONE
     Indication: Uveitis
     Route: 065
  3. DEXAMETHASONE SODIUM PHOSPHATE [Suspect]
     Active Substance: DEXAMETHASONE SODIUM PHOSPHATE
     Indication: Uveitis
     Route: 065

REACTIONS (3)
  - Eye symptom [Recovered/Resolved]
  - Condition aggravated [Recovered/Resolved]
  - Product use in unapproved indication [Unknown]
